FAERS Safety Report 6531157-4 (Version None)
Quarter: 2010Q1

REPORT INFORMATION
  Report Type: 
  Country: None (occurrence: None)
  Receive Date: 20100108
  Receipt Date: 20100104
  Transmission Date: 20100710
  Serious: Yes (Other)
  Sender: FDA-Public Use
  Company Number: US-BAYER-200943216NA

PATIENT
  Age: 63 Year
  Sex: Female
  Weight: 68 kg

DRUGS (6)
  1. CIPRO [Suspect]
     Indication: CYSTITIS
     Dates: start: 20090901, end: 20090901
  2. CIPRO [Suspect]
     Dates: start: 20081201
  3. ZOMETA [Concomitant]
     Dates: end: 20091006
  4. VELCADE [Concomitant]
     Indication: MULTIPLE MYELOMA
     Dosage: CYCLIC
     Route: 042
     Dates: start: 20090701, end: 20091027
  5. DOXIL [Concomitant]
     Indication: MULTIPLE MYELOMA
     Dosage: CYCLIC
     Route: 042
     Dates: start: 20090701, end: 20091023
  6. DEXAMETHASONE [Concomitant]
     Indication: MULTIPLE MYELOMA

REACTIONS (4)
  - PAIN [None]
  - RASH [None]
  - RASH PRURITIC [None]
  - TENDON RUPTURE [None]
